FAERS Safety Report 7866855-3 (Version None)
Quarter: 2011Q4

REPORT INFORMATION
  Report Type: 
  Country: None (occurrence: None)
  Receive Date: 20111028
  Receipt Date: 20111026
  Transmission Date: 20120403
  Serious: Yes (Hospitalization)
  Sender: FDA-Public Use
  Company Number: AU-ROCHE-1007585

PATIENT
  Age: 65 Year
  Sex: Male

DRUGS (8)
  1. XELODA [Suspect]
     Indication: PRODUCT USED FOR UNKNOWN INDICATION
     Route: 048
     Dates: start: 20100827, end: 20100827
  2. FOLIC ACID [Concomitant]
  3. DEXAMETHASONE [Concomitant]
  4. GRANISETRON [Concomitant]
  5. LOPERAMIDE HCL [Concomitant]
  6. METOCLOPRAMIDE HYDROCHLORIDE [Concomitant]
  7. CANDESARTAN CILEXETIL [Concomitant]
  8. OXALIPLATIN [Suspect]
     Indication: PRODUCT USED FOR UNKNOWN INDICATION
     Route: 042
     Dates: start: 20100830, end: 20100830

REACTIONS (2)
  - ENTEROCOLITIS [None]
  - INTESTINAL PERFORATION [None]
